FAERS Safety Report 15213405 (Version 2)
Quarter: 2018Q3

REPORT INFORMATION
  Report Type: Spontaneous
  Country: DE (occurrence: DE)
  Receive Date: 20180730
  Receipt Date: 20180824
  Transmission Date: 20181010
  Serious: Yes (Other)
  Sender: FDA-Public Use
  Company Number: DE-ABBVIE-18P-062-2435204-00

PATIENT
  Sex: Male
  Weight: 70 kg

DRUGS (5)
  1. KREON [Suspect]
     Active Substance: PANCRELIPASE
     Indication: PANCREATIC ENZYME REPLACEMENT THERAPY
     Dosage: 12 TO 15 HOURS, AFTER MEALS
     Route: 048
     Dates: start: 20180621, end: 20180626
  2. KREON [Suspect]
     Active Substance: PANCRELIPASE
     Dosage: 12 TO 15 HOURS, AFTER MEALS
     Route: 048
     Dates: start: 20180707, end: 20180708
  3. KREON [Suspect]
     Active Substance: PANCRELIPASE
     Dosage: 12 TO 15 HOURS, AFTER MEALS
     Route: 048
     Dates: start: 20180626, end: 20180630
  4. GEMCITABINE [Concomitant]
     Active Substance: GEMCITABINE\GEMCITABINE HYDROCHLORIDE
     Indication: CHEMOTHERAPY
     Dates: start: 20180628
  5. CAPECITABINE. [Concomitant]
     Active Substance: CAPECITABINE
     Indication: CHEMOTHERAPY
     Dosage: UNKNOWN
     Dates: end: 20180614

REACTIONS (6)
  - Abnormal faeces [Not Recovered/Not Resolved]
  - Flatulence [Not Recovered/Not Resolved]
  - Product quality issue [Unknown]
  - Drug ineffective [Unknown]
  - Diarrhoea [Recovered/Resolved]
  - Steatorrhoea [Not Recovered/Not Resolved]

NARRATIVE: CASE EVENT DATE: 20180622
